FAERS Safety Report 20939331 (Version 1)
Quarter: 2022Q2

REPORT INFORMATION
  Report Type: Spontaneous
  Country: GB (occurrence: GB)
  Receive Date: 20220609
  Receipt Date: 20220609
  Transmission Date: 20220721
  Serious: Yes (Hospitalization)
  Sender: FDA-Public Use
  Company Number: GB-MYLANLABS-2022M1038840

PATIENT
  Age: 81 Year
  Sex: Female

DRUGS (17)
  1. BENZYDAMINE [Suspect]
     Active Substance: BENZYDAMINE
     Indication: Tongue necrosis
     Dosage: UNK
  2. BENZYDAMINE [Suspect]
     Active Substance: BENZYDAMINE
     Indication: Oropharyngeal pain
  3. RAMIPRIL [Suspect]
     Active Substance: RAMIPRIL
     Indication: Hypertension
     Dosage: UNK, QD
  4. CHLORHEXIDINE [Suspect]
     Active Substance: CHLORHEXIDINE
     Indication: Tongue necrosis
     Dosage: MOUTHWASH
  5. OXETACAINE [Suspect]
     Active Substance: OXETHAZAINE
     Indication: Tongue necrosis
     Dosage: UNK
  6. DIHYDROCODEINE [Suspect]
     Active Substance: DIHYDROCODEINE
     Indication: Tongue necrosis
     Dosage: UNK
  7. CHOLINE SALICYLATE [Suspect]
     Active Substance: CHOLINE SALICYLATE
     Indication: Tongue necrosis
     Dosage: UNK
  8. PENICILLIN V [Concomitant]
     Active Substance: PENICILLIN V
     Indication: Glossodynia
     Dosage: UNK
     Route: 048
  9. PENICILLIN V [Concomitant]
     Active Substance: PENICILLIN V
     Indication: Oropharyngeal pain
  10. METHYLPREDNISOLONE [Concomitant]
     Active Substance: METHYLPREDNISOLONE
     Indication: Giant cell arteritis
     Dosage: 1 GRAM
     Route: 042
  11. NYSTATIN [Concomitant]
     Active Substance: NYSTATIN
     Indication: Oral candidiasis
     Dosage: UNK
     Route: 048
  12. OMEPRAZOLE [Concomitant]
     Active Substance: OMEPRAZOLE
     Indication: Product used for unknown indication
     Dosage: UNK
  13. DENOSUMAB [Concomitant]
     Active Substance: DENOSUMAB
     Indication: Product used for unknown indication
     Dosage: UNK
  14. PREDNISOLONE [Concomitant]
     Active Substance: PREDNISOLONE
     Indication: Giant cell arteritis
     Dosage: 60 MILLIGRAM, QD
     Route: 048
  15. PREDNISOLONE [Concomitant]
     Active Substance: PREDNISOLONE
     Dosage: UNK (TAPERING REGIMEN)
     Route: 048
  16. BENZYDAMINE [Concomitant]
     Active Substance: BENZYDAMINE
     Indication: Glossodynia
     Dosage: UNK
     Route: 048
  17. BENZYDAMINE [Concomitant]
     Active Substance: BENZYDAMINE
     Indication: Oropharyngeal pain

REACTIONS (2)
  - Drug ineffective [Unknown]
  - Off label use [Unknown]
